FAERS Safety Report 8300955-9 (Version None)
Quarter: 2012Q2

REPORT INFORMATION
  Report Type: 
  Country: None (occurrence: None)
  Receive Date: 20120420
  Receipt Date: 20120413
  Transmission Date: 20120825
  Serious: No
  Sender: FDA-Public Use
  Company Number: US-BAYER-2012-038175

PATIENT
  Sex: Female

DRUGS (1)
  1. ALEVE (CAPLET) [Suspect]
     Dosage: 1 UNIT USED ONLY ONE TIME
     Route: 048
     Dates: start: 20120401, end: 20120401

REACTIONS (1)
  - MENOPAUSE [None]
